FAERS Safety Report 10053052 (Version 1)
Quarter: 2014Q2

REPORT INFORMATION
  Report Type: Spontaneous
  Country: AU (occurrence: AU)
  Receive Date: 20140402
  Receipt Date: 20140402
  Transmission Date: 20141212
  Serious: Yes (Death)
  Sender: FDA-Public Use
  Company Number: AU-SA-2014SA036490

PATIENT
  Age: 66 Year
  Sex: 0

DRUGS (1)
  1. DOCETAXEL [Suspect]
     Indication: METASTATIC GASTRIC CANCER
     Route: 065

REACTIONS (1)
  - Death [Fatal]
